FAERS Safety Report 14715468 (Version 1)
Quarter: 2018Q2

REPORT INFORMATION
  Report Type: Spontaneous
  Country: DE (occurrence: DE)
  Receive Date: 20180404
  Receipt Date: 20180404
  Transmission Date: 20180711
  Serious: Yes (Other)
  Sender: FDA-Public Use
  Company Number: DE-MYLANLABS-2018M1020388

PATIENT
  Age: 46 Year
  Sex: Female

DRUGS (4)
  1. ZOLMIPTRIPTAN [Suspect]
     Active Substance: ZOLMITRIPTAN
     Indication: TINNITUS
     Dosage: UNK
     Route: 055
  2. INDOMETHACIN IV MYLAN [Suspect]
     Active Substance: INDOMETHACIN
     Indication: TINNITUS
     Dosage: UNK
     Route: 055
  3. GABAPENTIN MYLAN [Suspect]
     Active Substance: GABAPENTIN
     Indication: TINNITUS
     Dosage: UNK
     Route: 065
  4. PREGABALIN MYLAN [Suspect]
     Active Substance: PREGABALIN
     Indication: TINNITUS
     Dosage: 600 UNK, UNK

REACTIONS (5)
  - Nausea [Unknown]
  - Drug ineffective [Unknown]
  - Vertigo [Unknown]
  - Tooth injury [Recovered/Resolved]
  - Pain [Unknown]
